FAERS Safety Report 9380549 (Version 1)
Quarter: 2013Q3

REPORT INFORMATION
  Report Type: Spontaneous
  Country: GB (occurrence: GB)
  Receive Date: 20130702
  Receipt Date: 20130702
  Transmission Date: 20140515
  Serious: Yes (Other)
  Sender: FDA-Public Use
  Company Number: GB-ACTAVIS-2013-11961

PATIENT
  Sex: Female

DRUGS (1)
  1. GABAPENTIN (UNKNOWN) [Suspect]
     Indication: ARTHRALGIA
     Dosage: UNK
     Route: 048
     Dates: end: 20130603

REACTIONS (13)
  - Urinary tract infection [Unknown]
  - Somnolence [Unknown]
  - Headache [Unknown]
  - Loss of control of legs [Unknown]
  - Paraesthesia [Unknown]
  - Rhinorrhoea [Unknown]
  - Arthralgia [Unknown]
  - Pruritus [Unknown]
  - Blister [Unknown]
  - Micturition disorder [Unknown]
  - Diarrhoea [Unknown]
  - Dizziness [Unknown]
  - Gingival inflammation [Unknown]
